FAERS Safety Report 24203752 (Version 2)
Quarter: 2024Q3

REPORT INFORMATION
  Report Type: Spontaneous
  Country: PT (occurrence: PT)
  Receive Date: 20240813
  Receipt Date: 20240826
  Transmission Date: 20241017
  Serious: Yes (Death)
  Sender: GILEAD
  Company Number: None

PATIENT
  Age: 82 Year
  Sex: Male

DRUGS (7)
  1. VEKLURY [Suspect]
     Active Substance: REMDESIVIR
     Indication: COVID-19
     Dosage: 200 MG IN THE 1ST DOSE; 100 MG IN THE REMAINING 4 DOSES; ONCE A DAY
     Route: 042
     Dates: start: 20210215, end: 20210219
  2. DEXAMETHASONE [Concomitant]
     Active Substance: DEXAMETHASONE
  3. MORPHINE [Concomitant]
     Active Substance: MORPHINE
  4. ENOXAPARIN [Concomitant]
     Active Substance: ENOXAPARIN
  5. FUROSEMIDE [Concomitant]
     Active Substance: FUROSEMIDE
  6. HALOPERIDOL [Concomitant]
     Active Substance: HALOPERIDOL
  7. SODIUM CHLORIDE [Concomitant]
     Active Substance: SODIUM CHLORIDE

REACTIONS (1)
  - Drug ineffective [Fatal]

NARRATIVE: CASE EVENT DATE: 20210215
